FAERS Safety Report 23977821 (Version 2)
Quarter: 2024Q3

REPORT INFORMATION
  Report Type: Report from Study
  Country: IL (occurrence: IL)
  Receive Date: 20240614
  Receipt Date: 20240809
  Transmission Date: 20241017
  Serious: Yes (Hospitalization, Other)
  Sender: BAXTER
  Company Number: IL-BAXTER-2024BAX019525

PATIENT
  Age: 77 Year
  Sex: Female
  Weight: 67.2 kg

DRUGS (15)
  1. DOXORUBICIN [Suspect]
     Active Substance: DOXORUBICIN
     Indication: Diffuse large B-cell lymphoma
     Dosage: 84 MG/M2, C1D1
     Route: 042
     Dates: start: 20240422, end: 20240422
  2. DOXORUBICIN [Suspect]
     Active Substance: DOXORUBICIN
     Dosage: 50 MG/M2
     Route: 042
  3. CYCLOPHOSPHAMIDE [Suspect]
     Active Substance: CYCLOPHOSPHAMIDE
     Indication: Diffuse large B-cell lymphoma
     Dosage: 1260 MG/M2, C1D1
     Route: 042
     Dates: start: 20240422, end: 20240422
  4. CYCLOPHOSPHAMIDE [Suspect]
     Active Substance: CYCLOPHOSPHAMIDE
     Dosage: 750 MG/M2
     Route: 042
  5. EPCORITAMAB [Suspect]
     Active Substance: EPCORITAMAB
     Indication: Diffuse large B-cell lymphoma
     Dosage: 0.16 MG, PRIMING DOSE, C1D1, WEEKLY (QW)
     Route: 058
     Dates: start: 20240422, end: 20240422
  6. EPCORITAMAB [Suspect]
     Active Substance: EPCORITAMAB
     Dosage: 0.8 MG, INTERMEDIATE DOSE ON C1D8, WEEKLY (QW)
     Route: 058
     Dates: start: 20240430, end: 20240430
  7. EPCORITAMAB [Suspect]
     Active Substance: EPCORITAMAB
     Dosage: FULL DOSE OF 48 MG ON C1D15, WEEKLY (QW)
     Route: 058
     Dates: start: 20240507, end: 20240507
  8. RITUXIMAB [Suspect]
     Active Substance: RITUXIMAB
     Indication: Diffuse large B-cell lymphoma
     Dosage: 630 MG/M2, C1D1
     Route: 042
     Dates: start: 20240421, end: 20240421
  9. RITUXIMAB [Suspect]
     Active Substance: RITUXIMAB
     Dosage: 375 MG/M2
     Route: 042
  10. VINCRISTINE [Suspect]
     Active Substance: VINCRISTINE
     Indication: Diffuse large B-cell lymphoma
     Dosage: 2 MG/M2, C1D1
     Route: 042
     Dates: start: 20240422, end: 20240422
  11. VINCRISTINE [Suspect]
     Active Substance: VINCRISTINE
     Dosage: 1.4 MG/M2 (RECOMMENDED CAP OF 2 MG)
     Route: 042
  12. PREDNISONE [Suspect]
     Active Substance: PREDNISONE
     Indication: Diffuse large B-cell lymphoma
     Dosage: UNK
     Route: 065
  13. PREDNISONE [Suspect]
     Active Substance: PREDNISONE
     Dosage: 100 MG/DAY IV OR ORALLY ON D1-D5
     Route: 050
  14. ACETAMINOPHEN [Concomitant]
     Active Substance: ACETAMINOPHEN
     Indication: Premedication
     Dosage: 1 MG
     Route: 042
     Dates: start: 20240507
  15. PROTHIAZINE [Concomitant]
     Indication: Premedication
     Dosage: 25 MG
     Route: 048
     Dates: start: 20240507

REACTIONS (2)
  - Cytokine release syndrome [Recovered/Resolved]
  - Pyrexia [Recovered/Resolved]

NARRATIVE: CASE EVENT DATE: 20240508
